FAERS Safety Report 8029379-9 (Version None)
Quarter: 2012Q1

REPORT INFORMATION
  Report Type: 
  Country: None (occurrence: None)
  Receive Date: 20120106
  Receipt Date: 20120105
  Transmission Date: 20120608
  Serious: Yes (Hospitalization)
  Sender: FDA-Public Use
  Company Number: DK-ROCHE-794082

PATIENT
  Sex: Male
  Weight: 52 kg

DRUGS (18)
  1. CYCLOPHOSPHAMIDE [Suspect]
     Dosage: LAST DOSE PRIOR TO SAE: 03 AUGUST 2011
     Route: 042
  2. DOXORUBICIN HCL [Suspect]
     Indication: DIFFUSE LARGE B-CELL LYMPHOMA
     Dosage: LAST DOSE PRIOR SAE: 18 JULY 2011
     Route: 042
  3. VINCRISTINE [Suspect]
     Indication: DIFFUSE LARGE B-CELL LYMPHOMA
     Dosage: LAST DOSE PRIOR SAE: 18 JULY 2011
     Route: 042
  4. CYCLOPHOSPHAMIDE [Suspect]
     Indication: DIFFUSE LARGE B-CELL LYMPHOMA
     Dosage: LAST DOSE PRIOR SAE: 18 JULY 2011
     Route: 042
  5. DOXORUBICIN HCL [Suspect]
     Dosage: DISCONTINUED PERMANENTLY
     Route: 042
     Dates: start: 20110818, end: 20110818
  6. FILGRASTIM [Suspect]
     Indication: DIFFUSE LARGE B-CELL LYMPHOMA
     Dosage: LAST DOSE PRIOR SAE: 20 JULY 2011
     Route: 058
  7. DOXORUBICIN HCL [Suspect]
     Dosage: LAST DOSE PRIOR TO SAE: 03 AUGUST 2011
     Route: 042
  8. MABTHERA [Suspect]
     Dosage: DISCONTINUED PERMANENTLY
     Route: 042
     Dates: start: 20110818, end: 20110818
  9. CYCLOPHOSPHAMIDE [Suspect]
     Dosage: DISCONTINUED PERMANENTLY
     Route: 042
     Dates: start: 20110818, end: 20110818
  10. FILGRASTIM [Suspect]
     Dosage: LAST DOSE PRIOR TO SAE: 04 AUGUST 2011
     Route: 058
  11. MABTHERA [Suspect]
     Dosage: LAST DOSE PRIOR TO SAE: 03 AUGUST 2011
     Route: 042
  12. PREDNISONE [Suspect]
     Dosage: LAST DOSE PRIOR TO SAE: 07 AUGUST 2011
     Route: 048
  13. MABTHERA [Suspect]
     Indication: DIFFUSE LARGE B-CELL LYMPHOMA
     Dosage: LAST DOSE PRIOR SAE: 18 JULY 2011.
     Route: 042
  14. PREDNISONE [Suspect]
     Indication: DIFFUSE LARGE B-CELL LYMPHOMA
     Dosage: LAST DOSE PRIOR SAE: 22 JULY 2011
     Route: 048
  15. VINCRISTINE [Suspect]
     Dosage: LAST DOSE PRIOR TO SAE: 03 AUGUST 2011
     Route: 042
  16. FILGRASTIM [Suspect]
     Dosage: DISCONTINUED PERMANENTLY
     Route: 058
     Dates: start: 20110819, end: 20110819
  17. PREDNISONE [Suspect]
     Dosage: DISCONTINUED PERMANENTLY
     Route: 048
     Dates: start: 20110818, end: 20110822
  18. VINCRISTINE [Suspect]
     Dosage: DISCONTINUED PERMANENTLY
     Route: 042
     Dates: start: 20110818, end: 20110818

REACTIONS (7)
  - STOMATITIS [None]
  - HYPOMAGNESAEMIA [None]
  - FEBRILE NEUTROPENIA [None]
  - WEIGHT DECREASED [None]
  - ORAL CANDIDIASIS [None]
  - HYPOKALAEMIA [None]
  - DIARRHOEA [None]
